FAERS Safety Report 11586100 (Version 3)
Quarter: 2016Q3

REPORT INFORMATION
  Report Type: Report from Study
  Country: US (occurrence: US)
  Receive Date: 20151001
  Receipt Date: 20160817
  Transmission Date: 20161109
  Serious: No
  Sender: FDA-Public Use
  Company Number: US-AEGERION PHARMACEUTICAL INC.-AEGR001902

PATIENT
  Sex: Female
  Weight: 56.24 kg

DRUGS (3)
  1. JUXTAPID [Suspect]
     Active Substance: LOMITAPIDE MESYLATE
     Indication: TYPE IIA HYPERLIPIDAEMIA
     Dosage: 5 MG, QD
     Route: 048
     Dates: start: 20150326
  2. EZETIMIBE. [Concomitant]
     Active Substance: EZETIMIBE
     Indication: HYPERCHOLESTEROLAEMIA
     Dosage: UNK
  3. KRILL OIL [Concomitant]
     Active Substance: DIETARY SUPPLEMENT
     Indication: HYPERCHOLESTEROLAEMIA
     Dosage: UNK

REACTIONS (4)
  - Flatulence [Unknown]
  - Headache [Unknown]
  - Nasopharyngitis [Unknown]
  - Weight decreased [Unknown]
